FAERS Safety Report 15717427 (Version 1)
Quarter: 2018Q4

REPORT INFORMATION
  Report Type: Spontaneous
  Country: US (occurrence: US)
  Receive Date: 20181213
  Receipt Date: 20181213
  Transmission Date: 20190205
  Serious: Yes (Other)
  Sender: FDA-Public Use
  Company Number: US-BAYER-2018-225976

PATIENT
  Age: 42 Year
  Sex: Male

DRUGS (2)
  1. ACETYLSALICYLIC ACID (} 100 MG) [Suspect]
     Active Substance: ASPIRIN
     Indication: PAIN IN JAW
  2. NAPROXEN SODIUM ({= 220 MG) [Suspect]
     Active Substance: NAPROXEN SODIUM
     Indication: PAIN IN JAW

REACTIONS (7)
  - Toxicity to various agents [None]
  - Cardiac failure acute [None]
  - Osteomyelitis [None]
  - Hallucination, auditory [None]
  - Labelled drug-drug interaction medication error [None]
  - Duodenal ulcer [None]
  - Overdose [None]
